FAERS Safety Report 25394746 (Version 5)
Quarter: 2025Q4

REPORT INFORMATION
  Report Type: Report from Study
  Country: US (occurrence: None)
  Receive Date: 20250604
  Receipt Date: 20251208
  Transmission Date: 20260118
  Serious: Yes (Hospitalization, Other)
  Sender: UCB
  Company Number: US-UCBSA-2025009796

PATIENT

DRUGS (9)
  1. FENFLURAMINE [Suspect]
     Active Substance: FENFLURAMINE
     Indication: Severe myoclonic epilepsy of infancy
     Dosage: 3 MILLILITER, 2X/DAY (BID)
  2. FENFLURAMINE [Suspect]
     Active Substance: FENFLURAMINE
     Indication: Seizure
     Dosage: LOWER DOSE
  3. FENFLURAMINE [Suspect]
     Active Substance: FENFLURAMINE
     Dosage: 3 MILLILITER, 2X/DAY (BID)
  4. FENFLURAMINE [Suspect]
     Active Substance: FENFLURAMINE
     Dosage: 3 MILLILITER, 2X/DAY (BID)
  5. MELATONIN [Concomitant]
     Active Substance: MELATONIN
     Indication: Product used for unknown indication
     Dosage: 10 MG  HALF TABLET AT NIGHT
  6. FLUOXETINE HYDROCHLORIDE [Concomitant]
     Active Substance: FLUOXETINE HYDROCHLORIDE
     Indication: Product used for unknown indication
     Dosage: 60 MILLIGRAM, ONCE DAILY (QD)
  7. QUETIAPINE FUMARATE [Concomitant]
     Active Substance: QUETIAPINE FUMARATE
     Indication: Product used for unknown indication
     Dosage: 100 MILLIGRAM 1 TABLET TWICE DAILY
  8. CLOBAZAM [Concomitant]
     Active Substance: CLOBAZAM
     Indication: Product used for unknown indication
     Dosage: 1 TABLET BY MOUTH JNTHE MORNING AND ONE ANDONE-HAJ.F (1 + 1/2) TABLETS LLY MOUTH JN THE EVENING AS DIRECTED.
  9. DIVALPROEX SODIUM [Concomitant]
     Active Substance: DIVALPROEX SODIUM
     Indication: Product used for unknown indication
     Dosage: 500 MG TABLET DELAYED RELEASE TAKE ONE (1) TABLET(S) BY MOUTH TWJCE A DAY.

REACTIONS (8)
  - Seizure [Unknown]
  - Generalised tonic-clonic seizure [Not Recovered/Not Resolved]
  - Pneumonia [Not Recovered/Not Resolved]
  - Tremor [Unknown]
  - Anger [Unknown]
  - Anxiety [Unknown]
  - Behaviour disorder [Not Recovered/Not Resolved]
  - Drug ineffective [Unknown]
